FAERS Safety Report 15560554 (Version 1)
Quarter: 2018Q4

REPORT INFORMATION
  Report Type: Spontaneous
  Country: US (occurrence: US)
  Receive Date: 20181022
  Receipt Date: 20181022
  Transmission Date: 20190205
  Serious: Yes (Other)
  Sender: FDA-Public Use
  Company Number: None

PATIENT
  Age: 67 Year
  Sex: Male
  Weight: 71.35 kg

DRUGS (1)
  1. DAPTOMYCIN 500MG TEVA [Suspect]
     Active Substance: DAPTOMYCIN
     Indication: BACTERAEMIA
     Route: 042
     Dates: start: 20180925

REACTIONS (3)
  - Blood creatine phosphokinase increased [None]
  - Blood creatine increased [None]
  - C-reactive protein increased [None]

NARRATIVE: CASE EVENT DATE: 20181017
